FAERS Safety Report 18767002 (Version 1)
Quarter: 2021Q1

REPORT INFORMATION
  Report Type: Spontaneous
  Country: TH (occurrence: TH)
  Receive Date: 20210121
  Receipt Date: 20210121
  Transmission Date: 20210419
  Serious: Yes (Hospitalization)
  Sender: FDA-Public Use
  Company Number: TH-JNJFOC-20210117366

PATIENT
  Age: 33 Year
  Sex: Male

DRUGS (10)
  1. DIPHENHYDRAMINE HYDROCHLORIDE. [Suspect]
     Active Substance: DIPHENHYDRAMINE HYDROCHLORIDE
     Indication: COUGH
     Dosage: TAKEN 2 TIMES EVENING AND BEFORE BEDTIME TOTAL PARACETAMOL AND DIPHENHYDRAMINE CONTINUOUSLY TOTAL 9
     Route: 065
     Dates: start: 20190910, end: 20190912
  2. PARACETAMOL [Suspect]
     Active Substance: ACETAMINOPHEN
     Indication: NASAL CONGESTION
  3. PARACETAMOL [Suspect]
     Active Substance: ACETAMINOPHEN
     Indication: PYREXIA
  4. PARACETAMOL [Suspect]
     Active Substance: ACETAMINOPHEN
     Indication: RHINORRHOEA
  5. PARACETAMOL [Suspect]
     Active Substance: ACETAMINOPHEN
     Indication: DYSURIA
  6. DIPHENHYDRAMINE HYDROCHLORIDE. [Suspect]
     Active Substance: DIPHENHYDRAMINE HYDROCHLORIDE
     Indication: RHINORRHOEA
  7. DIPHENHYDRAMINE HYDROCHLORIDE. [Suspect]
     Active Substance: DIPHENHYDRAMINE HYDROCHLORIDE
     Indication: DYSURIA
  8. PARACETAMOL [Suspect]
     Active Substance: ACETAMINOPHEN
     Indication: COUGH
     Dosage: TAKEN 2 TIMES EVENING AND BEFORE BEDTIME TOTAL PARACETAMOL AND DIPHENHYDRAMINE CONTINUOUSLY TOTAL 9
     Route: 065
     Dates: start: 20190910, end: 20190925
  9. DIPHENHYDRAMINE HYDROCHLORIDE. [Suspect]
     Active Substance: DIPHENHYDRAMINE HYDROCHLORIDE
     Indication: NASAL CONGESTION
  10. DIPHENHYDRAMINE HYDROCHLORIDE. [Suspect]
     Active Substance: DIPHENHYDRAMINE HYDROCHLORIDE
     Indication: PYREXIA

REACTIONS (2)
  - Toxic epidermal necrolysis [Recovering/Resolving]
  - Product use in unapproved indication [Recovering/Resolving]

NARRATIVE: CASE EVENT DATE: 201909
